FAERS Safety Report 26097997 (Version 1)
Quarter: 2025Q4

REPORT INFORMATION
  Report Type: Spontaneous
  Country: US (occurrence: US)
  Receive Date: 20251127
  Receipt Date: 20251127
  Transmission Date: 20260117
  Serious: No
  Sender: B. BRAUN MEDICAL INC.
  Company Number: US-B. Braun Medical Inc.-US-BBM-202504529

PATIENT
  Age: 68 Year
  Sex: Male

DRUGS (2)
  1. CEFOXITIN [Suspect]
     Active Substance: CEFOXITIN SODIUM
     Indication: Infection
  2. AZITHROMYCIN [Suspect]
     Active Substance: AZITHROMYCIN

REACTIONS (5)
  - Rash maculo-papular [Recovering/Resolving]
  - Eosinophilia [Unknown]
  - Pruritus [Recovering/Resolving]
  - Diarrhoea [Recovering/Resolving]
  - Decreased appetite [Recovering/Resolving]
